FAERS Safety Report 4309753-4 (Version None)
Quarter: 2004Q1

REPORT INFORMATION
  Report Type: 
  Country: None (occurrence: None)
  Receive Date: 20040301
  Receipt Date: 20040220
  Transmission Date: 20041129
  Serious: Yes (Death, Other)
  Sender: FDA-Public Use
  Company Number: 430028M03USA

PATIENT
  Age: 43 Year
  Sex: Female

DRUGS (1)
  1. NOVANTRONE [Suspect]
     Indication: MULTIPLE SCLEROSIS
     Dosage: 19 MG, 1 IN 3 MONTHS
     Dates: start: 20010401, end: 20020522

REACTIONS (1)
  - ACUTE MYELOID LEUKAEMIA [None]
